FAERS Safety Report 14693174 (Version 1)
Quarter: 2018Q1

REPORT INFORMATION
  Report Type: Spontaneous
  Country: US (occurrence: US)
  Receive Date: 20180329
  Receipt Date: 20180329
  Transmission Date: 20180509
  Serious: Yes (Death)
  Sender: FDA-Public Use
  Company Number: US-LPDUSPRD-20180421

PATIENT
  Age: 15 Year
  Sex: Male
  Weight: 34.7 kg

DRUGS (4)
  1. BUSULFAN INJECTION (0517-0920-01) [Suspect]
     Active Substance: BUSULFAN
     Dosage: 27.8 MG (0.8 MG/KG, TEST DOSE)
     Route: 042
  2. FLUDARABINE [Suspect]
     Active Substance: FLUDARABINE PHOSPHATE
     Dosage: 40 MG/M2
     Route: 065
  3. POSACONAZOLE [Suspect]
     Active Substance: POSACONAZOLE
     Dosage: UNKNOWN
     Route: 065
  4. LEVETIRACETAM INJECTION (0517-3605-25) [Concomitant]
     Dosage: UNKNOWN
     Route: 065

REACTIONS (4)
  - Chemotherapeutic drug level increased [Unknown]
  - Drug interaction [Unknown]
  - Drug clearance decreased [Unknown]
  - Venoocclusive liver disease [Fatal]
